FAERS Safety Report 8826187 (Version 1)
Quarter: 2012Q4

REPORT INFORMATION
  Report Type: 
  Country: NL (occurrence: NL)
  Receive Date: 20121005
  Receipt Date: 20121005
  Transmission Date: 20130627
  Serious: Yes (Life-Threatening, Other)
  Sender: FDA-Public Use
  Company Number: PHHY2012NL046893

PATIENT
  Age: 45 None
  Sex: Female
  Weight: 70 kg

DRUGS (9)
  1. ZOMETA [Suspect]
     Indication: METASTASES TO BONE
     Dosage: 4mg/100ml  once per 28 days
     Route: 042
     Dates: start: 20120413
  2. ZOMETA [Suspect]
     Dosage: 4mg/100ml  once per 28 days
     Route: 042
     Dates: start: 20120511
  3. ZOMETA [Suspect]
     Dosage: 4mg/100ml  once per 28 days
     Route: 042
     Dates: start: 20120531
  4. ZOMETA [Suspect]
     Dosage: 4mg/100ml  once per 28 days
     Route: 042
     Dates: start: 20120827
  5. VINORELBINE [Concomitant]
     Dates: start: 201206
  6. VINORELBINE [Concomitant]
     Dates: start: 201207
  7. CHEMOTHERAPEUTICS [Concomitant]
  8. PARACETAMOL [Concomitant]
  9. DICLOFENAC [Concomitant]
     Dosage: 50 mg, (3DD) when needed

REACTIONS (10)
  - Terminal state [Unknown]
  - Dyspnoea [Not Recovered/Not Resolved]
  - Anaemia [Not Recovered/Not Resolved]
  - Oedema [Not Recovered/Not Resolved]
  - Neoplasm progression [Not Recovered/Not Resolved]
  - Malignant neoplasm progression [Not Recovered/Not Resolved]
  - Metastases to liver [Not Recovered/Not Resolved]
  - Metastases to lung [Not Recovered/Not Resolved]
  - Drug ineffective [Not Recovered/Not Resolved]
  - Fatigue [Not Recovered/Not Resolved]
